FAERS Safety Report 6516801-X (Version None)
Quarter: 2009Q4

REPORT INFORMATION
  Report Type: 
  Country: None (occurrence: None)
  Receive Date: 20091223
  Receipt Date: 20091209
  Transmission Date: 20100525
  Serious: Yes (Death, Hospitalization, Other)
  Sender: FDA-Public Use
  Company Number: TH-PFIZER INC-2009308732

PATIENT
  Age: 22 Year
  Sex: Male

DRUGS (3)
  1. ERAXIS [Suspect]
     Indication: SYSTEMIC CANDIDA
     Dosage: 200 MG, SINGLE
     Route: 042
     Dates: start: 20091201, end: 20091201
  2. ERAXIS [Suspect]
     Indication: FUNGAL INFECTION
     Dosage: 100 MG, 2X/DAY
     Route: 042
     Dates: start: 20091204
  3. TIENAM [Concomitant]
     Indication: BACTERIAL INFECTION
     Dosage: UNK
     Route: 042
     Dates: start: 20091201

REACTIONS (4)
  - BLOOD PRESSURE DECREASED [None]
  - DYSPNOEA [None]
  - RENAL FAILURE [None]
  - SEPSIS [None]
